FAERS Safety Report 13032814 (Version 3)
Quarter: 2018Q1

REPORT INFORMATION
  Report Type: Spontaneous
  Country: US (occurrence: US)
  Receive Date: 20161215
  Receipt Date: 20180108
  Transmission Date: 20180508
  Serious: No
  Sender: FDA-Public Use
  Company Number: US-ACTELION-A-NJ2016-146920

PATIENT
  Age: 76 Year
  Sex: Male

DRUGS (13)
  1. TARGRETIN [Concomitant]
     Active Substance: BEXAROTENE
     Dosage: UNK
     Route: 061
  2. SYNTHROID [Concomitant]
     Active Substance: LEVOTHYROXINE SODIUM
  3. VALCHLOR [Suspect]
     Active Substance: MECHLORETHAMINE
     Indication: MYCOSIS FUNGOIDES
     Dosage: UNK
     Route: 061
     Dates: start: 20161111, end: 201705
  4. TARGRETIN [Concomitant]
     Active Substance: BEXAROTENE
     Dosage: 75 MG, BID
  5. TIMOLOL. [Concomitant]
     Active Substance: TIMOLOL
  6. ROMIDEPSIN. [Concomitant]
     Active Substance: ROMIDEPSIN
  7. SIMVASTATIN. [Concomitant]
     Active Substance: SIMVASTATIN
  8. TURMERIC [Concomitant]
     Active Substance: HERBALS\TURMERIC
  9. MULTIVITAMINUM [Concomitant]
  10. FISH OIL [Concomitant]
     Active Substance: FISH OIL
  11. POTASSIUM CITRATE. [Concomitant]
     Active Substance: POTASSIUM CITRATE
  12. VITAMIN B12 [Concomitant]
     Active Substance: CYANOCOBALAMIN
  13. RHEUMATREX [Concomitant]
     Active Substance: METHOTREXATE SODIUM
     Dosage: ONCE A WEEK FOR 3 WEEKS
     Route: 042
     Dates: start: 20161212

REACTIONS (1)
  - Mycosis fungoides recurrent [Unknown]
